FAERS Safety Report 7151245-1 (Version None)
Quarter: 2010Q4

REPORT INFORMATION
  Report Type: 
  Country: None (occurrence: None)
  Receive Date: 20101210
  Receipt Date: 20101128
  Transmission Date: 20110411
  Serious: Yes (Death, Life-Threatening, Hospitalization)
  Sender: FDA-Public Use
  Company Number: HU-BRISTOL-MYERS SQUIBB COMPANY-14341978

PATIENT
  Age: 79 Year
  Sex: Male

DRUGS (13)
  1. APIXABAN [Suspect]
     Indication: THROMBOSIS PROPHYLAXIS
     Route: 048
     Dates: start: 20080813, end: 20080916
  2. COUMADIN [Suspect]
     Indication: THROMBOSIS PROPHYLAXIS
     Dosage: INTERRUPTED DATE: 15-SEP-08
     Route: 048
     Dates: start: 20080813, end: 20080916
  3. PLACEBO [Suspect]
     Indication: THROMBOSIS PROPHYLAXIS
     Dosage: APIXABAN ARM:13AUG08-16SEP08;WARFARIN ARM:13AUG08-14SEP08.
     Route: 048
     Dates: start: 20080813, end: 20080916
  4. METOPROLOL [Concomitant]
     Dosage: 50 MP
     Route: 048
     Dates: start: 20080616, end: 20080916
  5. FOSINOPRIL SODIUM [Concomitant]
     Dates: start: 20080616, end: 20080916
  6. HYDROCHLOROTHIAZIDE [Concomitant]
     Dates: start: 20080616, end: 20080916
  7. RANITIDINE [Concomitant]
     Dates: start: 20080607, end: 20080916
  8. SERENOA REPENS [Concomitant]
     Dates: start: 20080609, end: 20080916
  9. CIPROFLOXACIN [Concomitant]
     Route: 048
     Dates: start: 20080908, end: 20080912
  10. DICLOFENAC [Concomitant]
     Route: 048
     Dates: start: 20080908, end: 20080912
  11. DUOPRIL [Concomitant]
     Route: 048
     Dates: start: 20080616, end: 20080922
  12. ASPIRIN [Concomitant]
     Dates: start: 20070701, end: 20080916
  13. PROSTAMOL [Concomitant]
     Route: 048
     Dates: start: 20080609

REACTIONS (26)
  - ABDOMINAL PAIN [None]
  - ACUTE RESPIRATORY DISTRESS SYNDROME [None]
  - ALCOHOL USE [None]
  - ANAEMIA [None]
  - ANURIA [None]
  - AORTIC DILATATION [None]
  - ASPIRATION [None]
  - ATRIAL FIBRILLATION [None]
  - BRONCHOPNEUMONIA [None]
  - CARDIO-RESPIRATORY ARREST [None]
  - CARDIOMEGALY [None]
  - CARDIOPULMONARY FAILURE [None]
  - COAGULATION FACTOR DEFICIENCY [None]
  - DISSEMINATED INTRAVASCULAR COAGULATION [None]
  - INTERNATIONAL NORMALISED RATIO INCREASED [None]
  - LOSS OF CONSCIOUSNESS [None]
  - METABOLIC ACIDOSIS [None]
  - ORCHITIS [None]
  - PLATELET COUNT DECREASED [None]
  - PROTHROMBIN LEVEL DECREASED [None]
  - PULMONARY HAEMORRHAGE [None]
  - RESPIRATORY FAILURE [None]
  - RESPIRATORY GAS EXCHANGE DISORDER [None]
  - UPPER GASTROINTESTINAL HAEMORRHAGE [None]
  - VENOUS INSUFFICIENCY [None]
  - VOMITING [None]
